FAERS Safety Report 4361695-4 (Version None)
Quarter: 2004Q2

REPORT INFORMATION
  Report Type: 
  Country: None (occurrence: None)
  Receive Date: 20040521
  Receipt Date: 20040426
  Transmission Date: 20050107
  Serious: No
  Sender: FDA-Public Use
  Company Number: US-GLAXOSMITHKLINE-A0508458A

PATIENT
  Age: 53 Year
  Sex: Female

DRUGS (3)
  1. WELLBUTRIN XL [Suspect]
     Indication: POST-TRAUMATIC STRESS DISORDER
     Dosage: 150MG PER DAY
     Route: 048
     Dates: start: 20040101
  2. DARVON [Concomitant]
  3. OXYCONTIN [Concomitant]

REACTIONS (2)
  - INSOMNIA [None]
  - NAUSEA [None]
